FAERS Safety Report 15677336 (Version 1)
Quarter: 2018Q4

REPORT INFORMATION
  Report Type: Spontaneous
  Country: IR (occurrence: IR)
  Receive Date: 20181130
  Receipt Date: 20181130
  Transmission Date: 20190205
  Serious: Yes (Death, Other)
  Sender: FDA-Public Use
  Company Number: IR-SAKK-2018SA313816AA

PATIENT
  Sex: Female

DRUGS (1)
  1. MYOZYME [Suspect]
     Active Substance: ALGLUCOSIDASE ALFA
     Indication: GLYCOGEN STORAGE DISEASE TYPE II
     Dosage: 20 MG/KG
     Route: 041

REACTIONS (4)
  - Condition aggravated [Unknown]
  - Cardiac arrest [Fatal]
  - Infusion related reaction [Unknown]
  - Respiratory failure [Fatal]
